FAERS Safety Report 9690667 (Version 2)
Quarter: 2013Q4

REPORT INFORMATION
  Report Type: Spontaneous
  Country: US (occurrence: US)
  Receive Date: 20131115
  Receipt Date: 20131125
  Transmission Date: 20140711
  Serious: No
  Sender: FDA-Public Use
  Company Number: US-BAXTER-2013BAX044233

PATIENT
  Sex: Male

DRUGS (2)
  1. DIANEAL LOW CALCIUM [Suspect]
     Indication: PERITONEAL DIALYSIS
     Route: 033
  2. DIANEAL LOW CALCIUM [Suspect]
     Indication: PERITONEAL DIALYSIS
     Route: 033

REACTIONS (8)
  - Tremor [Recovering/Resolving]
  - Asthenia [Recovering/Resolving]
  - Peritoneal dialysis complication [Unknown]
  - Malaise [Recovering/Resolving]
  - Abdominal distension [Unknown]
  - Oedema [Recovering/Resolving]
  - Confusional state [Recovering/Resolving]
  - Haemorrhoids [Recovered/Resolved]
